FAERS Safety Report 6579746-5 (Version None)
Quarter: 2010Q1

REPORT INFORMATION
  Report Type: 
  Country: None (occurrence: None)
  Receive Date: 20100212
  Receipt Date: 20100209
  Transmission Date: 20100710
  Serious: Yes (Death)
  Sender: FDA-Public Use
  Company Number: A0843948A

PATIENT
  Sex: Male
  Weight: 47 kg

DRUGS (2)
  1. SERETIDE [Suspect]
     Route: 055
     Dates: start: 20080101, end: 20100205
  2. BUDESONIDE [Concomitant]
     Dates: start: 20080101, end: 20100205

REACTIONS (1)
  - MULTI-ORGAN FAILURE [None]
